FAERS Safety Report 21976964 (Version 1)
Quarter: 2023Q1

REPORT INFORMATION
  Report Type: Other
  Country: DE (occurrence: DE)
  Receive Date: 20230210
  Receipt Date: 20230210
  Transmission Date: 20230417
  Serious: Yes (Other)
  Sender: FDA-Public Use
  Company Number: DE-MACLEODS PHARMA UK LTD-MAC2023039711

PATIENT

DRUGS (11)
  1. METFORMIN HYDROCHLORIDE [Suspect]
     Active Substance: METFORMIN HYDROCHLORIDE
     Indication: Product used for unknown indication
     Dosage: 2000 MILLIGRAM, QD (1000 MG BID)
     Route: 065
     Dates: start: 20100330
  2. PANTOPRAZOLE SODIUM [Suspect]
     Active Substance: PANTOPRAZOLE SODIUM
     Indication: Product used for unknown indication
     Dosage: 20 MILLIGRAM, QD (PROLONGED-RELEASE TABLET)
     Route: 065
     Dates: start: 20170328
  3. ROSUVASTATIN [Suspect]
     Active Substance: ROSUVASTATIN
     Indication: Product used for unknown indication
     Dosage: 10 MILLIGRAM, QD
     Route: 065
     Dates: start: 20190328
  4. METOPROLOL [Suspect]
     Active Substance: METOPROLOL
     Indication: Product used for unknown indication
     Dosage: UNK, BID (50 OT)
     Route: 065
     Dates: start: 20170328
  5. HYDROCHLOROTHIAZIDE\VALSARTAN [Suspect]
     Active Substance: HYDROCHLOROTHIAZIDE\VALSARTAN
     Indication: Product used for unknown indication
     Dosage: 1 DOSAGE FORM, QD
     Route: 065
     Dates: start: 20100330
  6. INSULIN ASPART [Suspect]
     Active Substance: INSULIN ASPART
     Indication: Product used for unknown indication
     Dosage: UNK, (100 U/ML)
     Route: 065
     Dates: start: 20160328
  7. ASPIRIN [Suspect]
     Active Substance: ASPIRIN
     Indication: Product used for unknown indication
     Dosage: UNK, QD (100)
     Route: 065
     Dates: start: 20170301
  8. EPLERENONE [Suspect]
     Active Substance: EPLERENONE
     Indication: Product used for unknown indication
     Dosage: 25 MILLIGRAM, QD
     Route: 065
     Dates: start: 20200113
  9. AMLODIPINE BESYLATE [Suspect]
     Active Substance: AMLODIPINE BESYLATE
     Indication: Product used for unknown indication
     Dosage: 10 MILLIGRAM, QD (5 MG, BID)
     Route: 065
     Dates: start: 20170328
  10. ROXITHROMYCIN [Suspect]
     Active Substance: ROXITHROMYCIN
     Indication: Product used for unknown indication
     Dosage: UNK, QD (300 OT)
     Route: 065
     Dates: start: 20200320, end: 20200326
  11. TOUJEO [Suspect]
     Active Substance: INSULIN GLARGINE
     Indication: Product used for unknown indication
     Dosage: UNK (300 U/ML (28 DAILY) SOLUTION FOR INJECTION)
     Route: 065
     Dates: start: 20190606

REACTIONS (9)
  - Arrhythmia [Unknown]
  - Hypotonia [Unknown]
  - Arthralgia [Unknown]
  - Cardiovascular disorder [Unknown]
  - Palpitations [Unknown]
  - Influenza [Unknown]
  - Abdominal pain upper [Unknown]
  - Nausea [Unknown]
  - Diarrhoea [Unknown]

NARRATIVE: CASE EVENT DATE: 20200321
